FAERS Safety Report 11277247 (Version 1)
Quarter: 2015Q3

REPORT INFORMATION
  Report Type: Spontaneous
  Country: GB (occurrence: GB)
  Receive Date: 20150716
  Receipt Date: 20150716
  Transmission Date: 20151125
  Serious: Yes (Disabling)
  Sender: FDA-Public Use
  Company Number: GB-ELI_LILLY_AND_COMPANY-GB201507002417

PATIENT
  Age: 34 Year

DRUGS (6)
  1. FLUOXETINE [Suspect]
     Active Substance: FLUOXETINE\FLUOXETINE HYDROCHLORIDE
     Indication: PRODUCT USED FOR UNKNOWN INDICATION
     Dosage: 60 MG, QD
     Route: 048
  2. SALBUTAMOL [Concomitant]
     Active Substance: ALBUTEROL
     Dosage: 100 UG, PRN
     Route: 065
  3. BECLOMETASONE [Concomitant]
     Active Substance: BECLOMETHASONE DIPROPIONATE
     Dosage: 100MICROGRAMS/DOSE
     Route: 065
  4. LANSOPRAZOLE. [Concomitant]
     Active Substance: LANSOPRAZOLE
     Dosage: 15 MG, QD
     Route: 048
  5. MIRTAZAPINE. [Concomitant]
     Active Substance: MIRTAZAPINE
     Dosage: 45 MG, QD
     Route: 048
  6. QUETIAPINE [Concomitant]
     Active Substance: QUETIAPINE
     Dosage: 400 MG, QD
     Route: 048

REACTIONS (1)
  - Erectile dysfunction [Not Recovered/Not Resolved]
